FAERS Safety Report 5820288-X (Version None)
Quarter: 2008Q3

REPORT INFORMATION
  Report Type: 
  Country: None (occurrence: None)
  Receive Date: 20080724
  Receipt Date: 20070607
  Transmission Date: 20090109
  Serious: No
  Sender: FDA-Public Use
  Company Number: A0653678A

PATIENT
  Age: 73 Year
  Sex: Female

DRUGS (5)
  1. AVANDIA [Suspect]
     Dosage: 4MG TWICE PER DAY
     Route: 048
     Dates: start: 20070516, end: 20070520
  2. NORVASC [Concomitant]
  3. LORTAB [Concomitant]
  4. METFORMIN [Concomitant]
  5. NEXIUM [Concomitant]

REACTIONS (3)
  - DIARRHOEA [None]
  - FATIGUE [None]
  - PALPITATIONS [None]
